FAERS Safety Report 24535675 (Version 1)
Quarter: 2024Q4

REPORT INFORMATION
  Report Type: Spontaneous
  Country: US (occurrence: US)
  Receive Date: 20241022
  Receipt Date: 20241022
  Transmission Date: 20250114
  Serious: No
  Sender: PFIZER
  Company Number: US-PFIZER INC-202400279545

PATIENT
  Age: 9 Decade
  Sex: Female

DRUGS (1)
  1. LOPID [Suspect]
     Active Substance: GEMFIBROZIL
     Indication: Blood cholesterol abnormal
     Dosage: UNK

REACTIONS (3)
  - Oral discomfort [Unknown]
  - Dyspepsia [Unknown]
  - Reaction to excipient [Unknown]
